FAERS Safety Report 18982895 (Version 3)
Quarter: 2021Q2

REPORT INFORMATION
  Report Type: Report from Study
  Country: US (occurrence: US)
  Receive Date: 20210308
  Receipt Date: 20210406
  Transmission Date: 20210717
  Serious: Yes (Hospitalization, Other)
  Sender: FDA-Public Use
  Company Number: US-MYLANLABS-2020M1066488

PATIENT
  Age: 63 Year
  Sex: Female
  Weight: 77.09 kg

DRUGS (1)
  1. GLATIRAMER ACETATE INJECTION [Suspect]
     Active Substance: GLATIRAMER ACETATE
     Indication: RELAPSING-REMITTING MULTIPLE SCLEROSIS
     Dosage: 40 MILLIGRAM, 3XW
     Route: 058
     Dates: start: 20200715

REACTIONS (10)
  - Injection site extravasation [Unknown]
  - Injection site induration [Unknown]
  - Wrong device used [Unknown]
  - Asthenia [Unknown]
  - Injection site pruritus [Unknown]
  - Malaise [Unknown]
  - Hepatic cancer [Unknown]
  - Injection site swelling [Unknown]
  - Product dose omission issue [Unknown]
  - Hot flush [Unknown]

NARRATIVE: CASE EVENT DATE: 20200715
